FAERS Safety Report 7355857-1 (Version None)
Quarter: 2011Q1

REPORT INFORMATION
  Report Type: 
  Country: None (occurrence: None)
  Receive Date: 20110316
  Receipt Date: 20110309
  Transmission Date: 20110831
  Serious: Yes (Other)
  Sender: FDA-Public Use
  Company Number: US-US-EMD SERONO, INC.-7044305

PATIENT
  Sex: Male

DRUGS (1)
  1. REBIF [Suspect]
     Indication: MULTIPLE SCLEROSIS
     Route: 058
     Dates: start: 20110222, end: 20110222

REACTIONS (5)
  - SUICIDAL IDEATION [None]
  - DEPRESSION [None]
  - PAIN [None]
  - PSYCHOMOTOR HYPERACTIVITY [None]
  - LIMB DISCOMFORT [None]
